FAERS Safety Report 9684104 (Version 1)
Quarter: 2013Q4

REPORT INFORMATION
  Report Type: Spontaneous
  Country: FR (occurrence: FR)
  Receive Date: 20131112
  Receipt Date: 20131112
  Transmission Date: 20140711
  Serious: Yes (Hospitalization)
  Sender: FDA-Public Use
  Company Number: FR-ASTRAZENECA-2013SE81777

PATIENT
  Age: 922 Month
  Sex: Female

DRUGS (10)
  1. CRESTOR [Suspect]
     Route: 048
     Dates: end: 20130816
  2. CRESTOR [Suspect]
     Route: 048
  3. AUGMENTIN [Suspect]
     Indication: SKIN ULCER
     Route: 048
     Dates: start: 20130809, end: 20130813
  4. AUGMENTIN [Suspect]
     Indication: SKIN ULCER
     Route: 048
  5. TAREG [Concomitant]
  6. ZANIDIP [Concomitant]
  7. KARDEGIC [Concomitant]
  8. AZILECT [Concomitant]
  9. EBIXA [Concomitant]
  10. MIANSERINE CHLORHYDRATE [Concomitant]

REACTIONS (10)
  - Toxic skin eruption [Recovered/Resolved]
  - Hepatocellular injury [Recovered/Resolved]
  - Cholestasis [Recovered/Resolved]
  - Skin ulcer [Unknown]
  - Skin necrosis [Unknown]
  - Osteolysis [Unknown]
  - Drug eruption [Recovered/Resolved]
  - Pruritus [Recovered/Resolved]
  - Platelet count increased [Unknown]
  - Blood creatinine increased [Unknown]
